FAERS Safety Report 4999632-1 (Version None)
Quarter: 2006Q2

REPORT INFORMATION
  Report Type: 
  Country: None (occurrence: None)
  Receive Date: 20060511
  Receipt Date: 20060501
  Transmission Date: 20061013
  Serious: Yes (Hospitalization)
  Sender: FDA-Public Use
  Company Number: US-BRISTOL-MYERS SQUIBB COMPANY-13362413

PATIENT
  Age: 87 Year
  Sex: Male

DRUGS (7)
  1. WARFARIN SODIUM [Suspect]
     Dosage: LONG TERM THERAPY WITH 2.5 MG DAILY EXCEPT FOR 5 MG ON THURSDAYS
  2. ROYAL JELLY [Suspect]
  3. FELODIPINE [Concomitant]
  4. LISINOPRIL AND HYDROCHLOROTHIAZIDE [Concomitant]
  5. DILTIAZEM HCL [Concomitant]
  6. POTASSIUM CHLORIDE [Concomitant]
  7. OXYCODONE [Concomitant]
     Indication: PAIN

REACTIONS (2)
  - DRUG INTERACTION [None]
  - HAEMATURIA [None]
